FAERS Safety Report 9450157 (Version 1)
Quarter: 2013Q3

REPORT INFORMATION
  Report Type: Spontaneous
  Country: US (occurrence: US)
  Receive Date: 20130809
  Receipt Date: 20130809
  Transmission Date: 20140515
  Serious: No
  Sender: FDA-Public Use
  Company Number: US-GLAXOSMITHKLINE-A1003549A

PATIENT
  Sex: Female

DRUGS (13)
  1. REQUIP XL [Suspect]
     Indication: PARKINSON^S DISEASE
     Dosage: 1MG PER DAY
     Route: 048
     Dates: start: 201112
  2. ROPINIROLE [Suspect]
     Indication: PRODUCT USED FOR UNKNOWN INDICATION
     Route: 048
  3. ASPIRIN [Concomitant]
  4. LIPITOR [Concomitant]
  5. ZETIA [Concomitant]
  6. NIASPAN [Concomitant]
  7. FISH OIL [Concomitant]
  8. VITAMINS [Concomitant]
  9. CO Q 10 [Concomitant]
  10. VITAMIN D [Concomitant]
  11. MULTIVITAMIN [Concomitant]
  12. XANAX [Concomitant]
  13. AZILECT [Concomitant]

REACTIONS (10)
  - Hypermetabolism [Recovering/Resolving]
  - Fatigue [Unknown]
  - Somnolence [Unknown]
  - Feeling abnormal [Unknown]
  - Feeling abnormal [Unknown]
  - Muscle spasms [Unknown]
  - Tongue disorder [Unknown]
  - Dry mouth [Unknown]
  - Dizziness [Unknown]
  - Drug ineffective [Unknown]
